FAERS Safety Report 7581325-8 (Version None)
Quarter: 2011Q2

REPORT INFORMATION
  Report Type: 
  Country: None (occurrence: None)
  Receive Date: 20110629
  Receipt Date: 20110621
  Transmission Date: 20111010
  Serious: Yes (Other)
  Sender: FDA-Public Use
  Company Number: CA-JNJFOC-20101106348

PATIENT
  Sex: Male

DRUGS (6)
  1. DIPROLENE [Concomitant]
  2. FOLIC ACID [Concomitant]
  3. METHOTREXATE [Concomitant]
  4. ARTHROTEC [Concomitant]
  5. SIMPONI [Suspect]
     Indication: PSORIATIC ARTHROPATHY
     Route: 058
     Dates: start: 20110125
  6. SIMPONI [Suspect]
     Route: 058
     Dates: start: 20100921

REACTIONS (1)
  - MALIGNANT MELANOMA [None]
